FAERS Safety Report 9896893 (Version 5)
Quarter: 2014Q3

REPORT INFORMATION
  Report Type: Report from Study
  Country: CA (occurrence: CA)
  Receive Date: 20140214
  Receipt Date: 20140723
  Transmission Date: 20150326
  Serious: Yes (Hospitalization, Other)
  Sender: FDA-Public Use
  Company Number: CA-ROCHE-1339285

PATIENT
  Age: 60 Year
  Sex: Female
  Weight: 59 kg

DRUGS (5)
  1. LIPITOR [Concomitant]
     Active Substance: ATORVASTATIN CALCIUM
  2. ACTEMRA [Suspect]
     Active Substance: TOCILIZUMAB
     Indication: RHEUMATOID ARTHRITIS
     Route: 042
     Dates: start: 20130228, end: 20131216
  3. ASA [Concomitant]
     Active Substance: ASPIRIN
     Route: 065
  4. CELEBREX [Concomitant]
     Active Substance: CELECOXIB
  5. TECTA [Concomitant]
     Active Substance: PANTOPRAZOLE MAGNESIUM

REACTIONS (9)
  - Pleural effusion [Unknown]
  - Sepsis [Unknown]
  - Nasopharyngitis [Not Recovered/Not Resolved]
  - Atelectasis [Unknown]
  - Blood alkaline phosphatase increased [Unknown]
  - Platelet count increased [Unknown]
  - Gamma-glutamyltransferase increased [Unknown]
  - Pneumonia [Unknown]
  - Blood glucose increased [Unknown]

NARRATIVE: CASE EVENT DATE: 201312
